FAERS Safety Report 14203617 (Version 1)
Quarter: 2017Q4

REPORT INFORMATION
  Report Type: Report from Study
  Country: CN (occurrence: CN)
  Receive Date: 20171120
  Receipt Date: 20171120
  Transmission Date: 20180321
  Serious: Yes (Other)
  Sender: FDA-Public Use
  Company Number: CN-ROCHE-2022953

PATIENT

DRUGS (1)
  1. CAPECITABINE. [Suspect]
     Active Substance: CAPECITABINE
     Indication: RECTAL CANCER
     Dosage: 5 TIMES IN A WEEK, AND TOTAL 5 WEEK
     Route: 048

REACTIONS (5)
  - Radiation skin injury [Unknown]
  - Nausea [Unknown]
  - Proctitis [Unknown]
  - Bone marrow failure [Unknown]
  - Vomiting [Unknown]
